FAERS Safety Report 8988102 (Version 3)
Quarter: 2013Q1

REPORT INFORMATION
  Report Type: Report from Study
  Country: US (occurrence: US)
  Receive Date: 20121227
  Receipt Date: 20130123
  Transmission Date: 20140127
  Serious: Yes (Hospitalization, Other)
  Sender: FDA-Public Use
  Company Number: US-BAYER-2012-133448

PATIENT
  Age: 60 Year
  Sex: Male

DRUGS (2)
  1. STIVARGA [Suspect]
     Indication: COLON CANCER
     Dosage: 160 MG, QD
     Route: 048
     Dates: start: 20121205, end: 201212
  2. STIVARGA [Suspect]
     Indication: COLON CANCER
     Dosage: 80 MG, QD (2 TABLETS)
     Route: 048
     Dates: start: 20130109

REACTIONS (15)
  - Dehydration [Recovered/Resolved]
  - Diarrhoea [Recovering/Resolving]
  - Aphagia [Not Recovered/Not Resolved]
  - Paraesthesia [Recovering/Resolving]
  - Temperature intolerance [Recovering/Resolving]
  - Peripheral coldness [Recovering/Resolving]
  - Blood pressure increased [Recovering/Resolving]
  - Hernia pain [Not Recovered/Not Resolved]
  - Nausea [Recovering/Resolving]
  - Dysphagia [Recovered/Resolved]
  - Pharyngeal erythema [None]
  - Dysgeusia [Not Recovered/Not Resolved]
  - Vomiting [Recovering/Resolving]
  - Hepatic pain [Not Recovered/Not Resolved]
  - Depression [Not Recovered/Not Resolved]
